FAERS Safety Report 6616658-2 (Version None)
Quarter: 2010Q1

REPORT INFORMATION
  Report Type: 
  Country: None (occurrence: None)
  Receive Date: 20100305
  Receipt Date: 20100224
  Transmission Date: 20100710
  Serious: No
  Sender: FDA-Public Use
  Company Number: JP-ROCHE-685598

PATIENT
  Sex: Female
  Weight: 82 kg

DRUGS (4)
  1. TAMIFLU [Suspect]
     Indication: INFLUENZA
     Route: 048
     Dates: start: 20100204, end: 20100206
  2. TAMIFLU [Suspect]
     Route: 048
     Dates: start: 20100207, end: 20100207
  3. COCARL [Concomitant]
     Route: 048
     Dates: start: 20100204, end: 20100207
  4. KAKKON-TO [Concomitant]
     Dosage: DIVIDED INTO 3 DOSES.
     Route: 048
     Dates: start: 20100204, end: 20100207

REACTIONS (2)
  - DRUG ERUPTION [None]
  - LIVER DISORDER [None]
